APPROVED DRUG PRODUCT: SUMATRIPTAN AND NAPROXEN SODIUM
Active Ingredient: NAPROXEN SODIUM; SUMATRIPTAN SUCCINATE
Strength: 500MG;EQ 85MG BASE
Dosage Form/Route: TABLET;ORAL
Application: A202803 | Product #001 | TE Code: AB
Applicant: SUN PHARMACEUTICAL INDUSTRIES LTD
Approved: Jul 20, 2018 | RLD: No | RS: No | Type: RX